FAERS Safety Report 7393711-X (Version None)
Quarter: 2011Q1

REPORT INFORMATION
  Report Type: 
  Country: None (occurrence: None)
  Receive Date: 20110330
  Receipt Date: 20110330
  Transmission Date: 20110831
  Serious: Yes (Life-Threatening)
  Sender: FDA-Public Use
  Company Number: None

PATIENT
  Age: 50 Year
  Sex: Female
  Weight: 114.76 kg

DRUGS (2)
  1. MOXIFLOACIN HCI [Concomitant]
  2. AVELOX [Suspect]
     Indication: SINUSITIS
     Dosage: ONE TABLET ONCE DAILY PO
     Route: 048
     Dates: start: 20110310, end: 20110315

REACTIONS (12)
  - NECK MASS [None]
  - SWELLING [None]
  - STEVENS-JOHNSON SYNDROME [None]
  - DRUG INEFFECTIVE [None]
  - SCAB [None]
  - THERMAL BURN [None]
  - MASS [None]
  - IMPAIRED WORK ABILITY [None]
  - PRURITUS [None]
  - OEDEMA MOUTH [None]
  - PARAESTHESIA [None]
  - BLISTER [None]
